FAERS Safety Report 17225833 (Version 1)
Quarter: 2020Q1

REPORT INFORMATION
  Report Type: Report from Study
  Country: US (occurrence: US)
  Receive Date: 20200102
  Receipt Date: 20200102
  Transmission Date: 20200409
  Serious: Yes (Hospitalization)
  Sender: FDA-Public Use
  Company Number: US-ACTELION-A-NJ2015-124373

PATIENT
  Age: 67 Year
  Sex: Female
  Weight: 75.28 kg

DRUGS (6)
  1. OPSUMIT [Suspect]
     Active Substance: MACITENTAN
     Dosage: 10 MG, QD
     Route: 048
  2. CLARITIN [Concomitant]
     Active Substance: LORATADINE
  3. OPSUMIT [Suspect]
     Active Substance: MACITENTAN
     Indication: PULMONARY ARTERIAL HYPERTENSION
     Dosage: 10 MG, QD
     Route: 048
     Dates: start: 20140605
  4. TREPROSTINIL DIOLAMIN [Suspect]
     Active Substance: TREPROSTINIL DIOLAMINE
     Indication: PRODUCT USED FOR UNKNOWN INDICATION
     Dosage: 1.375 MG, TID
     Route: 065
  5. DILTIAZEM. [Concomitant]
     Active Substance: DILTIAZEM
  6. ADCIRCA [Concomitant]
     Active Substance: TADALAFIL
     Dosage: UNK

REACTIONS (31)
  - Palpitations [Unknown]
  - Basedow^s disease [Not Recovered/Not Resolved]
  - Tachycardia [Unknown]
  - Interstitial lung disease [Not Recovered/Not Resolved]
  - Influenza [Unknown]
  - Abdominal distension [Unknown]
  - Decreased appetite [Unknown]
  - Abdominal pain upper [Unknown]
  - Urticaria [Unknown]
  - Stent placement [Recovering/Resolving]
  - Diarrhoea [Unknown]
  - Flushing [Unknown]
  - Weight decreased [Unknown]
  - Sinusitis [Unknown]
  - Pruritus [Unknown]
  - Sluggishness [Not Recovered/Not Resolved]
  - Cough [Not Recovered/Not Resolved]
  - Flatulence [Unknown]
  - Nausea [Unknown]
  - Headache [Unknown]
  - Abdominal discomfort [Unknown]
  - Oedema [Unknown]
  - Dyspnoea exertional [Unknown]
  - Upper-airway cough syndrome [Unknown]
  - Bronchitis [Unknown]
  - Chest pain [Unknown]
  - Dyspepsia [Unknown]
  - Diverticulitis [Unknown]
  - Nasopharyngitis [Unknown]
  - Nasal congestion [Unknown]
  - Hyperthyroidism [Unknown]

NARRATIVE: CASE EVENT DATE: 201501
